FAERS Safety Report 25688467 (Version 1)
Quarter: 2025Q3

REPORT INFORMATION
  Report Type: Report from Study
  Country: EU (occurrence: EU)
  Receive Date: 20250818
  Receipt Date: 20250818
  Transmission Date: 20251021
  Serious: Yes (Congenital Anomaly, Other)
  Sender: CELLTRION
  Company Number: None

PATIENT

DRUGS (1)
  1. RITUXIMAB [Suspect]
     Active Substance: RITUXIMAB
     Indication: Product used for unknown indication
     Route: 042
     Dates: start: 20230803, end: 20230803

REACTIONS (3)
  - Cleft palate [Recovered/Resolved]
  - Low birth weight baby [Recovered/Resolved]
  - Foetal exposure timing unspecified [Unknown]

NARRATIVE: CASE EVENT DATE: 20240311
